FAERS Safety Report 4649406-6 (Version None)
Quarter: 2005Q2

REPORT INFORMATION
  Report Type: 
  Country: None (occurrence: None)
  Receive Date: 20050427
  Receipt Date: 20050411
  Transmission Date: 20051028
  Serious: Yes (Hospitalization)
  Sender: FDA-Public Use
  Company Number: 2005057703

PATIENT
  Age: 24 Year
  Sex: Female
  Weight: 77.1115 kg

DRUGS (4)
  1. BEXTRA [Suspect]
     Indication: ENDOMETRIOSIS
     Dosage: 20 MG (20 MG, 1 IN 1 D), ORAL
     Route: 048
     Dates: start: 20040723, end: 20040927
  2. ALPRAZOLAM [Concomitant]
  3. TOPIRAMATE [Concomitant]
  4. BUPROPION HYDROCHLORIDE [Concomitant]

REACTIONS (5)
  - BLISTER [None]
  - PAIN [None]
  - RASH [None]
  - SCAR [None]
  - SKIN DISORDER [None]
